FAERS Safety Report 8226689-7 (Version None)
Quarter: 2012Q1

REPORT INFORMATION
  Report Type: 
  Country: None (occurrence: None)
  Receive Date: 20120322
  Receipt Date: 20120313
  Transmission Date: 20120608
  Serious: Yes (Hospitalization)
  Sender: FDA-Public Use
  Company Number: US-BAYER-2011-075751

PATIENT
  Age: 19 Year
  Sex: Female
  Weight: 84.807 kg

DRUGS (4)
  1. YASMIN [Suspect]
     Dosage: UNK
     Route: 048
     Dates: start: 20051118, end: 20100101
  2. PROTONIX [Concomitant]
  3. PEPCID [Concomitant]
  4. YAZ [Suspect]
     Dosage: UNK
     Route: 048
     Dates: start: 20051118, end: 20100101

REACTIONS (3)
  - PANCREATITIS ACUTE [None]
  - PAIN [None]
  - CHOLECYSTITIS CHRONIC [None]
